FAERS Safety Report 4672982-4 (Version None)
Quarter: 2005Q2

REPORT INFORMATION
  Report Type: 
  Country: None (occurrence: None)
  Receive Date: 20050524
  Receipt Date: 20050510
  Transmission Date: 20051028
  Serious: Yes (Hospitalization, Other)
  Sender: FDA-Public Use
  Company Number: GXKR2005US01079

PATIENT
  Age: 24 Year
  Sex: Female

DRUGS (1)
  1. AMITRIPTYLINE HCL [Suspect]
     Indication: ANXIETY

REACTIONS (6)
  - DRUG ABUSER [None]
  - DRUG DEPENDENCE [None]
  - EUPHORIC MOOD [None]
  - IMPAIRED DRIVING ABILITY [None]
  - INTENTIONAL MISUSE [None]
  - LOSS OF CONSCIOUSNESS [None]
